FAERS Safety Report 20180841 (Version 1)
Quarter: 2021Q4

REPORT INFORMATION
  Report Type: Spontaneous
  Country: US (occurrence: US)
  Receive Date: 20211214
  Receipt Date: 20211214
  Transmission Date: 20220303
  Serious: Yes (Hospitalization, Other)
  Sender: FDA-Public Use
  Company Number: US-MLMSERVICE-20211126-3240927-1

PATIENT
  Age: 85 Year
  Sex: Female

DRUGS (1)
  1. CAPECITABINE [Suspect]
     Active Substance: CAPECITABINE
     Indication: Anal squamous cell carcinoma

REACTIONS (5)
  - Abdominal distension [Recovering/Resolving]
  - Oesophagitis [Recovering/Resolving]
  - Weight decreased [Recovering/Resolving]
  - Autonomic neuropathy [Recovering/Resolving]
  - Impaired gastric emptying [Recovering/Resolving]
